FAERS Safety Report 24042277 (Version 1)
Quarter: 2024Q3

REPORT INFORMATION
  Report Type: Spontaneous
  Country: VN (occurrence: VN)
  Receive Date: 20240702
  Receipt Date: 20240702
  Transmission Date: 20241017
  Serious: Yes (Other)
  Sender: ORGANON
  Company Number: VN-ORGANON-O2407VNM000061

PATIENT
  Age: 77 Year
  Sex: Female

DRUGS (4)
  1. ATORVASTATIN\EZETIMIBE [Suspect]
     Active Substance: ATORVASTATIN\EZETIMIBE
     Dosage: 1 TABLET/DAY
     Route: 048
  2. CLOPIDOGREL [Suspect]
     Active Substance: CLOPIDOGREL BISULFATE
     Dosage: 1 TABLET/DAY
  3. NEBIVOLOL [Suspect]
     Active Substance: NEBIVOLOL
     Dosage: 1 TABLET/DAY
  4. TRIMETAZIDINE [Suspect]
     Active Substance: TRIMETAZIDINE
     Dosage: 1 TABLET X 2  PER DAY.

REACTIONS (2)
  - Heart failure with preserved ejection fraction [Unknown]
  - Cardiac amyloidosis [Unknown]
